FAERS Safety Report 13839354 (Version 1)
Quarter: 2017Q3

REPORT INFORMATION
  Report Type: Spontaneous
  Country: AR (occurrence: AR)
  Receive Date: 20170807
  Receipt Date: 20170807
  Transmission Date: 20171127
  Serious: Yes (Death, Hospitalization, Other)
  Sender: FDA-Public Use
  Company Number: AR-BAYER-2017-144775

PATIENT
  Age: 73 Year
  Sex: Male

DRUGS (2)
  1. REGORAFENIB [Suspect]
     Active Substance: REGORAFENIB
     Indication: COLORECTAL CANCER
     Dosage: 160 MG, QD
     Dates: start: 201608
  2. REGORAFENIB [Suspect]
     Active Substance: REGORAFENIB
     Indication: COLORECTAL CANCER
     Dosage: 120 MG, QD

REACTIONS (6)
  - Performance status decreased [None]
  - Diarrhoea [Recovered/Resolved]
  - Dyspnoea [None]
  - Colorectal cancer [Fatal]
  - Asthenia [Recovered/Resolved]
  - Ascites [None]

NARRATIVE: CASE EVENT DATE: 201608
